FAERS Safety Report 6403283-1 (Version None)
Quarter: 2009Q4

REPORT INFORMATION
  Report Type: 
  Country: None (occurrence: None)
  Receive Date: 20091016
  Receipt Date: 20091002
  Transmission Date: 20100525
  Serious: Yes (Hospitalization)
  Sender: FDA-Public Use
  Company Number: JP-PFIZER INC-2009279830

PATIENT
  Age: 68 Year

DRUGS (16)
  1. CAMPTOSAR [Suspect]
     Indication: RECTAL CANCER
     Dosage: 288 MG (180 MG/M2), UNK
     Route: 041
     Dates: start: 20090610, end: 20090626
  2. CAMPTOSAR [Suspect]
     Dosage: 240 MG (150 MG/M2), UNK
     Route: 041
     Dates: start: 20090710, end: 20090918
  3. CALCIUM LEVOFOLINATE [Concomitant]
     Indication: RECTAL CANCER
     Dosage: 320 MG (200 MG/M2), UNK
     Route: 041
     Dates: start: 20090610, end: 20090918
  4. FLUOROURACIL [Concomitant]
     Indication: RECTAL CANCER
     Dosage: 640 MG (400 MG/M2), UNK
     Route: 040
     Dates: start: 20090610, end: 20090918
  5. FLUOROURACIL [Concomitant]
     Dosage: 3840 MG (2400 MG/M2), UNK
     Route: 041
     Dates: start: 20090610, end: 20090918
  6. AVASTIN [Concomitant]
     Indication: RECTAL CANCER
     Dosage: 5 MG/KG, UNK
     Route: 041
     Dates: start: 20090610, end: 20090918
  7. EURODIN [Concomitant]
     Indication: INSOMNIA
     Dosage: 1 MG, UNK
     Route: 048
     Dates: start: 20090518
  8. ALOSENN [Concomitant]
     Indication: CONSTIPATION
     Dosage: 1 G, UNK
     Route: 048
     Dates: start: 20090601
  9. MYSLEE [Concomitant]
     Indication: INSOMNIA
     Dosage: 5 MG, UNK
     Route: 048
     Dates: start: 20090601
  10. MUCOSTA [Concomitant]
     Indication: GASTRITIS PROPHYLAXIS
     Dosage: 300 MG, UNK
     Route: 048
     Dates: start: 20090808
  11. GASTER [Concomitant]
     Indication: GASTRITIS PROPHYLAXIS
     Dosage: 20 MG, UNK
     Route: 048
     Dates: start: 20090808
  12. GOSHAJINKIGAN [Concomitant]
     Indication: HYPOAESTHESIA
     Dosage: 7.5 G, UNK
     Route: 048
     Dates: start: 20090810
  13. HARNAL [Concomitant]
     Indication: DYSURIA
     Dosage: UNK
     Route: 048
     Dates: start: 20090821
  14. AMLODIPINE [Concomitant]
     Indication: BLOOD PRESSURE INCREASED
     Dosage: UNK
     Route: 048
     Dates: start: 20090821
  15. OXYCONTIN [Concomitant]
     Indication: MALAISE
     Dosage: 10 MG, UNK
     Route: 048
     Dates: start: 20090826
  16. MAGNESIUM OXIDE [Concomitant]
     Indication: CONSTIPATION PROPHYLAXIS
     Dosage: 990 MG, UNK
     Route: 048
     Dates: start: 20090831

REACTIONS (1)
  - CLONIC CONVULSION [None]
